FAERS Safety Report 22232663 (Version 1)
Quarter: 2023Q2

REPORT INFORMATION
  Report Type: Other
  Country: US (occurrence: None)
  Receive Date: 20230420
  Receipt Date: 20230420
  Transmission Date: 20230722
  Serious: No
  Sender: FDA-Public Use
  Company Number: US-ROCHE-3086793

PATIENT
  Age: 70 Year
  Sex: Female

DRUGS (11)
  1. BEVACIZUMAB [Suspect]
     Active Substance: BEVACIZUMAB
     Indication: Macular oedema
     Route: 050
  2. OZURDEX [Concomitant]
     Active Substance: DEXAMETHASONE
     Indication: Macular oedema
     Route: 050
  3. PREDNISONE [Concomitant]
     Active Substance: PREDNISONE
     Indication: Idiopathic pulmonary fibrosis
     Route: 048
  4. METHOTREXATE [Concomitant]
     Active Substance: METHOTREXATE
     Indication: Idiopathic pulmonary fibrosis
  5. VANCOMYCIN [Concomitant]
     Active Substance: VANCOMYCIN
     Indication: Endophthalmitis
     Dosage: 1 MG/0.1 ML
     Route: 050
  6. CEFTAZIDIME [Concomitant]
     Active Substance: CEFTAZIDIME
     Indication: Endophthalmitis
     Dosage: 2.25 MG/0.1 ML
     Route: 050
  7. PREDNISOLONE ACETATE [Concomitant]
     Active Substance: PREDNISOLONE ACETATE
  8. TETRACAINE [Concomitant]
     Active Substance: TETRACAINE
     Route: 061
  9. LIDOCAINE [Concomitant]
     Active Substance: LIDOCAINE
     Route: 057
  10. POVIDONE-IODINE [Concomitant]
     Active Substance: POVIDONE-IODINE
  11. SALINE [Concomitant]
     Active Substance: SODIUM CHLORIDE

REACTIONS (3)
  - Off label use [Unknown]
  - Off label use [Unknown]
  - No adverse event [Unknown]
